FAERS Safety Report 5902396-8 (Version None)
Quarter: 2008Q3

REPORT INFORMATION
  Report Type: 
  Country: None (occurrence: None)
  Receive Date: 20080925
  Receipt Date: 20080910
  Transmission Date: 20090109
  Serious: Yes (Hospitalization, Other)
  Sender: FDA-Public Use
  Company Number: 2008S1014334

PATIENT
  Age: 76 Year
  Sex: Male
  Weight: 81.6475 kg

DRUGS (8)
  1. METHOTREXATE [Suspect]
     Indication: POLYMYALGIA RHEUMATICA
     Dosage: 2.5 MG; 3 TIMES A DAY; ORAL
     Route: 048
     Dates: start: 20080721, end: 20080726
  2. METHOTREXATE [Suspect]
     Indication: RHEUMATOID ARTHRITIS
     Dosage: 2.5 MG; 3 TIMES A DAY; ORAL
     Route: 048
     Dates: start: 20080721, end: 20080726
  3. METOPROLOL TARTRATE [Concomitant]
  4. METFORMIN HCL [Concomitant]
  5. CORTICOSTEROID NOS [Concomitant]
  6. DIOVAN [Concomitant]
  7. COUMADIN [Concomitant]
  8. .. [Concomitant]

REACTIONS (14)
  - ABSCESS INTESTINAL [None]
  - ACCIDENTAL OVERDOSE [None]
  - BLISTER [None]
  - BLOOD COUNT ABNORMAL [None]
  - FUNGAL INFECTION [None]
  - GENERALISED ERYTHEMA [None]
  - HEADACHE [None]
  - INCORRECT DOSE ADMINISTERED [None]
  - OROPHARYNGEAL BLISTERING [None]
  - PHOTOPHOBIA [None]
  - POST PROCEDURAL DIARRHOEA [None]
  - PRURITUS GENERALISED [None]
  - SKIN EXFOLIATION [None]
  - STOMATITIS [None]
